FAERS Safety Report 5516190-3 (Version None)
Quarter: 2007Q4

REPORT INFORMATION
  Report Type: 
  Country: None (occurrence: None)
  Receive Date: 20071114
  Receipt Date: 20070105
  Transmission Date: 20080405
  Serious: No
  Sender: FDA-Public Use
  Company Number: A0634093A

PATIENT
  Age: 23 Year
  Sex: Male

DRUGS (1)
  1. COMMIT [Suspect]
     Dates: start: 20060103, end: 20060103

REACTIONS (2)
  - APHTHOUS STOMATITIS [None]
  - ORAL DISCOMFORT [None]
